FAERS Safety Report 25555824 (Version 3)
Quarter: 2025Q3

REPORT INFORMATION
  Report Type: Spontaneous
  Country: US (occurrence: US)
  Receive Date: 20250715
  Receipt Date: 20250912
  Transmission Date: 20251021
  Serious: No
  Sender: SANOFI AVENTIS
  Company Number: US-SA-2025SA197270

PATIENT
  Age: 15 Year
  Sex: Male
  Weight: 76.19 kg

DRUGS (7)
  1. ALTUVIIIO [Suspect]
     Active Substance: EFANESOCTOCOG ALFA
     Indication: Factor VIII deficiency
     Dosage: 4000 UNIT: ALTUVIIIO 3943 UNITS/VIAL, 4 VIALS. INFUSE ONE VIAL OF 3943 UNITS ALONG WITH TWO VIALS OF
     Route: 042
     Dates: start: 20241218
  2. ALTUVIIIO [Suspect]
     Active Substance: EFANESOCTOCOG ALFA
     Route: 042
  3. ALTUVIIIO [Suspect]
     Active Substance: EFANESOCTOCOG ALFA
     Dosage: 4500 IU, QW
     Route: 042
     Dates: start: 202501
  4. ALTUVIIIO [Suspect]
     Active Substance: EFANESOCTOCOG ALFA
     Route: 042
     Dates: start: 2025
  5. ALTUVIIIO [Suspect]
     Active Substance: EFANESOCTOCOG ALFA
     Dosage: ALTUVIIIO 3815 UNITS/VIAL, 4 VIALS. INFUSE ONE 3815 UNIT VIAL INTRAVENOUSLY EVERY 7 DAYS OR AS NEEDE
     Route: 042
  6. AMLODIPINE [Concomitant]
     Active Substance: AMLODIPINE BESYLATE
  7. SODIUM CHLORIDE [Concomitant]
     Active Substance: SODIUM CHLORIDE

REACTIONS (3)
  - Fear of injection [Unknown]
  - Weight decreased [Recovered/Resolved]
  - Treatment noncompliance [Unknown]

NARRATIVE: CASE EVENT DATE: 20250101
